FAERS Safety Report 19404706 (Version 1)
Quarter: 2021Q2

REPORT INFORMATION
  Report Type: Spontaneous
  Country: US (occurrence: US)
  Receive Date: 20210611
  Receipt Date: 20210611
  Transmission Date: 20210717
  Serious: No
  Sender: FDA-Public Use
  Company Number: US-SA-2021SA195181

PATIENT
  Age: 62 Year
  Sex: Male

DRUGS (5)
  1. PREGABALIN. [Concomitant]
     Active Substance: PREGABALIN
     Dosage: UNK UNK, QD
  2. AMITRIPTYLINE HCL [Concomitant]
     Active Substance: AMITRIPTYLINE
     Dosage: UNK, QD
  3. DUPIXENT [Suspect]
     Active Substance: DUPILUMAB
     Indication: DERMATITIS ATOPIC
     Dosage: 300 MG, QOW
     Route: 058
     Dates: start: 202003
  4. BETAMETHASONE DIPROPIONATE. [Concomitant]
     Active Substance: BETAMETHASONE DIPROPIONATE
     Indication: DERMATITIS ATOPIC
     Dosage: UNK, QD
  5. ATORVASTATIN CALCIUM. [Concomitant]
     Active Substance: ATORVASTATIN CALCIUM
     Dosage: UNK UNK, QD

REACTIONS (5)
  - Pruritus [Unknown]
  - Skin exfoliation [Unknown]
  - Skin fissures [Unknown]
  - Dry skin [Unknown]
  - Rash [Unknown]

NARRATIVE: CASE EVENT DATE: 2021
